FAERS Safety Report 6608630-3 (Version None)
Quarter: 2010Q1

REPORT INFORMATION
  Report Type: 
  Country: None (occurrence: None)
  Receive Date: 20100226
  Receipt Date: 20100226
  Transmission Date: 20100710
  Serious: Yes (Life-Threatening)
  Sender: FDA-Public Use
  Company Number: None

PATIENT
  Age: 21 Year
  Sex: Male
  Weight: 72.1219 kg

DRUGS (4)
  1. HALOPERIDOL [Suspect]
     Dosage: 5MG IM
     Route: 030
  2. RISPERIDONE [Concomitant]
  3. CLONIDINE [Concomitant]
  4. LORAZEPAM [Concomitant]

REACTIONS (4)
  - EYE DISORDER [None]
  - INCONTINENCE [None]
  - STARING [None]
  - UNRESPONSIVE TO STIMULI [None]
